FAERS Safety Report 5714770-3 (Version None)
Quarter: 2008Q2

REPORT INFORMATION
  Report Type: 
  Country: None (occurrence: None)
  Receive Date: 20080423
  Receipt Date: 20080417
  Transmission Date: 20081010
  Serious: Yes (Other)
  Sender: FDA-Public Use
  Company Number: FR-ASTRAZENECA-2008CG00599

PATIENT
  Age: 84 Year
  Sex: Male

DRUGS (2)
  1. NEXIUM [Suspect]
     Route: 048
     Dates: end: 20080410
  2. PAOV-FM [Suspect]
     Indication: BLADDER CANCER
     Route: 048
     Dates: end: 20080410

REACTIONS (1)
  - EOSINOPHILIA [None]
